FAERS Safety Report 18024713 (Version 1)
Quarter: 2020Q3

REPORT INFORMATION
  Report Type: Spontaneous
  Country: US (occurrence: US)
  Receive Date: 20200715
  Receipt Date: 20200715
  Transmission Date: 20201103
  Serious: Yes (Other)
  Sender: FDA-Public Use
  Company Number: None

PATIENT
  Age: 51 Year
  Sex: Female
  Weight: 61 kg

DRUGS (2)
  1. FERRLECIT [Suspect]
     Active Substance: SODIUM FERRIC GLUCONATE COMPLEX
     Indication: IRON DEFICIENCY ANAEMIA
     Dosage: ?          OTHER FREQUENCY:ONCE;?
     Route: 042
     Dates: start: 20200714, end: 20200714
  2. BAXTER NS 250 ML BAG (LOT: 4329771) [Concomitant]

REACTIONS (6)
  - Pain [None]
  - Dizziness [None]
  - Urticaria [None]
  - Infusion related reaction [None]
  - Nausea [None]
  - Rash [None]

NARRATIVE: CASE EVENT DATE: 20200714
